FAERS Safety Report 8030643 (Version 2)
Quarter: 2013Q1

REPORT INFORMATION
  Report Type: Report from Study
  Country: JP (occurrence: JP)
  Receive Date: 20110712
  Receipt Date: 20130312
  Transmission Date: 20140127
  Serious: Yes (Death, Other)
  Sender: FDA-Public Use
  Company Number: PHHY2011JP59288

PATIENT
  Age: 75 Year
  Sex: Male
  Weight: 63 kg

DRUGS (17)
  1. ICL670A [Suspect]
     Indication: IRON OVERLOAD
     Dosage: 1250 MG, UNK
     Route: 048
     Dates: start: 20081003, end: 20090306
  2. ICL670A [Suspect]
     Dosage: 1250 MG, UNK
     Route: 048
     Dates: start: 20090529, end: 20090903
  3. DESFERAL [Concomitant]
     Indication: IRON OVERLOAD
     Dosage: 500 MG, UNK
     Route: 030
     Dates: start: 20070615, end: 20080808
  4. PRIMOBOLAN [Concomitant]
     Indication: MYELODYSPLASTIC SYNDROME
     Dosage: 20 MG, UNK
     Route: 048
     Dates: start: 20081003
  5. PRIMOBOLAN [Concomitant]
     Dosage: 20 MG, UNK
     Route: 048
     Dates: end: 20091003
  6. ZYLORIC [Concomitant]
     Dosage: 200 MG, UNK
     Route: 048
     Dates: start: 20081003, end: 20090403
  7. PREDNISOLONE [Concomitant]
     Dosage: 10 MG, UNK
     Route: 048
     Dates: start: 20081003
  8. PREDNISOLONE [Concomitant]
     Dosage: 7.5 MG, UNK
     Route: 048
     Dates: end: 20091003
  9. ITRIZOLE [Concomitant]
     Dosage: 200 MG, UNK
     Route: 048
     Dates: start: 20081003
  10. ITRIZOLE [Concomitant]
     Dosage: 200 MG, UNK
     Route: 048
     Dates: end: 20091003
  11. BAKTAR [Concomitant]
     Dosage: 1 DF, UNK
     Route: 048
     Dates: start: 20081003, end: 20090403
  12. TAKEPRON [Concomitant]
     Dosage: 30 MG, UNK
     Route: 048
     Dates: start: 20081003, end: 20091003
  13. BONALON [Concomitant]
     Dosage: 35 MG, UNK
     Dates: start: 20080206, end: 20091003
  14. MUCOSOLVAN [Concomitant]
     Dosage: 45 MG, UNK
     Route: 048
     Dates: start: 20081003, end: 20091003
  15. MEDICON [Concomitant]
     Dosage: 45 MG, UNK
     Route: 048
     Dates: start: 20081003, end: 20090403
  16. BACTRAMIN [Concomitant]
     Dosage: 1 DF, UNK
     Route: 048
     Dates: start: 20090529, end: 20091003
  17. RED BLOOD CELLS, CONCENTRATED [Concomitant]
     Dosage: 2 U, EVERY 4 WEEKS
     Dates: start: 20090417, end: 20090612

REACTIONS (3)
  - Mesenteric occlusion [Fatal]
  - Hepatic function abnormal [Recovering/Resolving]
  - Bile duct stone [Recovering/Resolving]
